FAERS Safety Report 24941790 (Version 2)
Quarter: 2025Q1

REPORT INFORMATION
  Report Type: Spontaneous
  Country: US (occurrence: US)
  Receive Date: 20250207
  Receipt Date: 20250213
  Transmission Date: 20250409
  Serious: Yes (Death, Hospitalization)
  Sender: MYLAN
  Company Number: US-MYLANLABS-2025M1011302

PATIENT
  Age: 67 Year
  Sex: Male

DRUGS (8)
  1. VANCOMYCIN [Suspect]
     Active Substance: VANCOMYCIN
     Indication: Pneumonia
     Route: 065
  2. PANTOPRAZOLE [Suspect]
     Active Substance: PANTOPRAZOLE
     Indication: Oesophagitis
     Route: 042
  3. PANTOPRAZOLE [Suspect]
     Active Substance: PANTOPRAZOLE
     Indication: Gastrointestinal ulcer
  4. PANTOPRAZOLE [Suspect]
     Active Substance: PANTOPRAZOLE
     Indication: Gastrointestinal haemorrhage
  5. CEFEPIME [Suspect]
     Active Substance: CEFEPIME HYDROCHLORIDE
     Indication: Pneumonia
     Route: 065
  6. CARAFATE [Suspect]
     Active Substance: SUCRALFATE
     Indication: Oesophagitis
     Route: 065
  7. CARAFATE [Suspect]
     Active Substance: SUCRALFATE
     Indication: Gastrointestinal ulcer
  8. CARAFATE [Suspect]
     Active Substance: SUCRALFATE
     Indication: Gastrointestinal haemorrhage

REACTIONS (8)
  - Stevens-Johnson syndrome [Fatal]
  - Oral disorder [Fatal]
  - Oesophageal disorder [Fatal]
  - Drug ineffective [Fatal]
  - Oesophagitis [Fatal]
  - Gastrointestinal ulcer [Fatal]
  - Gastrointestinal haemorrhage [Fatal]
  - Melaena [Fatal]
